FAERS Safety Report 6760386-X (Version None)
Quarter: 2010Q2

REPORT INFORMATION
  Report Type: 
  Country: None (occurrence: None)
  Receive Date: 20100608
  Receipt Date: 20100527
  Transmission Date: 20101027
  Serious: Yes (Other)
  Sender: FDA-Public Use
  Company Number: JP-ASTRAZENECA-2010SE25811

PATIENT
  Age: 37 Year
  Sex: Male
  Weight: 75.6 kg

DRUGS (7)
  1. MEROPEN [Suspect]
     Indication: ENTERITIS INFECTIOUS
     Route: 042
  2. CYCLOSPORINE [Suspect]
     Indication: PSORIASIS
     Route: 048
  3. CYCLOSPORINE [Suspect]
     Route: 048
  4. CLINDAMYCIN PHOSPHATE [Suspect]
     Indication: ENTERITIS INFECTIOUS
     Route: 042
  5. PREDNISOLONE [Suspect]
     Route: 048
  6. PREDNISOLONE [Suspect]
     Route: 048
  7. PREDNISOLONE [Suspect]
     Route: 042

REACTIONS (2)
  - BONE MARROW FAILURE [None]
  - SMALL INTESTINAL HAEMORRHAGE [None]
